FAERS Safety Report 15924850 (Version 1)
Quarter: 2019Q1

REPORT INFORMATION
  Report Type: Report from Study
  Country: US (occurrence: US)
  Receive Date: 20190206
  Receipt Date: 20190206
  Transmission Date: 20190417
  Serious: Yes (Other)
  Sender: FDA-Public Use
  Company Number: US-ROCHE-2259043

PATIENT
  Age: 80 Year
  Sex: Female
  Weight: 85.5 kg

DRUGS (4)
  1. OXALIPLATIN. [Suspect]
     Active Substance: OXALIPLATIN
     Indication: ADENOCARCINOMA OF COLON
     Dosage: MOST RECENT DOSE ADMINISTERED PRIOR TO ONSET OF SAE ON 03/APR/2018, 80 MG.
     Route: 042
     Dates: start: 20170512
  2. 5-FLUOROURACIL [Suspect]
     Active Substance: FLUOROURACIL
     Indication: ADENOCARCINOMA OF COLON
     Dosage: MOST RECENT DOSE ADMINISTERED PRIOR TO ONSET OF SAE ON 03/APR/2018, 4300 MG.
     Route: 042
     Dates: start: 20170512
  3. ATEZOLIZUMAB. [Suspect]
     Active Substance: ATEZOLIZUMAB
     Indication: ADENOCARCINOMA OF COLON
     Dosage: MOST RECENT DOSE ADMINISTERED PRIOR TO ONSET OF SAE ON 03/APR/2018, 840 MG.
     Route: 042
     Dates: start: 20170512
  4. LEUCOVORIN CALCIUM. [Suspect]
     Active Substance: LEUCOVORIN CALCIUM
     Indication: ADENOCARCINOMA OF COLON
     Dosage: MOST RECENT DOSE ADMINISTERED PRIOR TO ONSET OF SAE ON 03/APR/2018, 768 MG.
     Route: 042
     Dates: start: 20170512

REACTIONS (1)
  - Hypokalaemia [Recovered/Resolved]

NARRATIVE: CASE EVENT DATE: 20180406
